FAERS Safety Report 13681891 (Version 1)
Quarter: 2017Q2

REPORT INFORMATION
  Report Type: Spontaneous
  Country: BG (occurrence: BG)
  Receive Date: 20170623
  Receipt Date: 20170623
  Transmission Date: 20170830
  Serious: Yes (Death, Hospitalization)
  Sender: FDA-Public Use
  Company Number: PHHY2017BG092177

PATIENT
  Age: 58 Year
  Sex: Male

DRUGS (13)
  1. TRIFAS [Concomitant]
     Indication: ANGINA PECTORIS
  2. LANITOP [Concomitant]
     Active Substance: METILDIGOXIN
     Indication: CARDIAC FAILURE
     Route: 065
  3. SINTROM [Concomitant]
     Active Substance: ACENOCOUMAROL
     Indication: CARDIAC FAILURE
     Route: 065
  4. CORDARONE [Concomitant]
     Active Substance: AMIODARONE HYDROCHLORIDE
     Indication: ANGINA PECTORIS
  5. SPIRONOLACTONE. [Concomitant]
     Active Substance: SPIRONOLACTONE
     Indication: ANGINA PECTORIS
  6. ENTRESTO [Suspect]
     Active Substance: SACUBITRIL\VALSARTAN
     Indication: CARDIAC FAILURE
     Dosage: 100 MG, BID
     Route: 048
     Dates: start: 2016, end: 2017
  7. TRIFAS [Concomitant]
     Indication: CARDIAC FAILURE
     Route: 065
  8. SPIRONOLACTONE. [Concomitant]
     Active Substance: SPIRONOLACTONE
     Indication: CARDIAC FAILURE
     Route: 065
  9. DILATREND [Concomitant]
     Active Substance: CARVEDILOL
     Indication: CARDIAC FAILURE
     Route: 065
  10. DILATREND [Concomitant]
     Active Substance: CARVEDILOL
     Indication: ANGINA PECTORIS
  11. LANITOP [Concomitant]
     Active Substance: METILDIGOXIN
     Indication: ANGINA PECTORIS
  12. SINTROM [Concomitant]
     Active Substance: ACENOCOUMAROL
     Indication: ANGINA PECTORIS
  13. CORDARONE [Concomitant]
     Active Substance: AMIODARONE HYDROCHLORIDE
     Indication: CARDIAC FAILURE
     Route: 065

REACTIONS (3)
  - Renal failure [Unknown]
  - Cardiorenal syndrome [Fatal]
  - Cardiac failure [Unknown]
